FAERS Safety Report 18386531 (Version 3)
Quarter: 2021Q1

REPORT INFORMATION
  Report Type: Spontaneous
  Country: US (occurrence: US)
  Receive Date: 20201015
  Receipt Date: 20210308
  Transmission Date: 20210419
  Serious: No
  Sender: FDA-Public Use
  Company Number: US-SA-2020SA281613

PATIENT
  Age: 49 Year
  Sex: Female

DRUGS (2)
  1. DUPIXENT [Suspect]
     Active Substance: DUPILUMAB
     Dosage: UNK, QOW
     Route: 058
  2. DUPIXENT [Suspect]
     Active Substance: DUPILUMAB
     Indication: ASTHMA
     Dosage: 300 MG, QOW
     Route: 058

REACTIONS (6)
  - Paraesthesia [Unknown]
  - Hypoaesthesia [Unknown]
  - Product use issue [Unknown]
  - Hypoaesthesia [Unknown]
  - Injection site bruising [Unknown]
  - Pain [Unknown]

NARRATIVE: CASE EVENT DATE: 20201218
